FAERS Safety Report 10083384 (Version 1)
Quarter: 2014Q2

REPORT INFORMATION
  Report Type: Spontaneous
  Country: US (occurrence: None)
  Receive Date: 20140415
  Receipt Date: 20140415
  Transmission Date: 20141212
  Serious: Yes (Hospitalization)
  Sender: FDA-Public Use
  Company Number: 2014P1002952

PATIENT
  Age: 5 Year
  Sex: Female

DRUGS (2)
  1. PREDNISONE [Suspect]
     Indication: ACQUIRED HAEMOPHILIA
  2. PREDNISONE [Suspect]
     Indication: FACTOR VIII DEFICIENCY

REACTIONS (6)
  - Small intestinal obstruction [None]
  - Abdominal adhesions [None]
  - Small intestinal perforation [None]
  - Peritonitis [None]
  - Septic shock [None]
  - Disseminated intravascular coagulation [None]
